FAERS Safety Report 7274695-1 (Version None)
Quarter: 2011Q1

REPORT INFORMATION
  Report Type: 
  Country: None (occurrence: None)
  Receive Date: 20110202
  Receipt Date: 20110202
  Transmission Date: 20110831
  Serious: Yes (Hospitalization, Other)
  Sender: FDA-Public Use
  Company Number: None

PATIENT
  Age: 66 Year
  Sex: Female

DRUGS (1)
  1. IBANDRONATE SODIUM [Suspect]
     Dosage: 150 MG IV
     Route: 042
     Dates: start: 20101217

REACTIONS (3)
  - CELLULITIS [None]
  - NECROTISING FASCIITIS [None]
  - CHEMICAL INJURY [None]
